FAERS Safety Report 4874660-5 (Version None)
Quarter: 2006Q1

REPORT INFORMATION
  Report Type: 
  Country: None (occurrence: None)
  Receive Date: 20060106
  Receipt Date: 20051005
  Transmission Date: 20060701
  Serious: Yes (Disabling, Other)
  Sender: FDA-Public Use
  Company Number: US-MERCK-0510USA04398

PATIENT
  Sex: Female

DRUGS (1)
  1. VIOXX [Suspect]
     Indication: PAIN
     Route: 048
     Dates: start: 20011101, end: 20040930

REACTIONS (3)
  - CARDIOVASCULAR DISORDER [None]
  - RENAL FAILURE [None]
  - SPINAL CORD INJURY [None]
